FAERS Safety Report 4528548-X (Version None)
Quarter: 2004Q4

REPORT INFORMATION
  Report Type: 
  Country: None (occurrence: None)
  Receive Date: 20041216
  Receipt Date: 20041104
  Transmission Date: 20050328
  Serious: Yes (Other)
  Sender: FDA-Public Use
  Company Number: JP-ABBOTT-04P-087-0282420-00

PATIENT
  Age: 75 Year
  Sex: Male

DRUGS (6)
  1. SEVORANE LIQUID FOR INHALATION [Suspect]
     Indication: ANAESTHESIA
     Route: 055
  2. VERAPAMIL [Concomitant]
     Indication: ARRHYTHMIA SUPRAVENTRICULAR
     Route: 042
  3. DIAZEPAM [Concomitant]
     Indication: ARRHYTHMIA SUPRAVENTRICULAR
     Route: 042
  4. THIAMYLAL SODIUM [Concomitant]
     Indication: INDUCTION OF ANAESTHESIA
     Route: 042
  5. VECURONIUM BROMIDE [Concomitant]
     Indication: MUSCLE RELAXANT THERAPY
     Route: 042
  6. NITROUS OXIDE [Concomitant]
     Indication: MAINTENANCE OF ANAESTHESIA
     Route: 055

REACTIONS (3)
  - BLOOD PRESSURE DECREASED [None]
  - CARDIAC FAILURE [None]
  - OXYGEN SATURATION DECREASED [None]
